FAERS Safety Report 8515415-X (Version None)
Quarter: 2012Q3

REPORT INFORMATION
  Report Type: 
  Country: None (occurrence: None)
  Receive Date: 20120717
  Receipt Date: 20120706
  Transmission Date: 20120928
  Serious: Yes (Hospitalization)
  Sender: FDA-Public Use
  Company Number: JP-VERTEX PHARMACEUTICALS INC.-AE-2012-010176

PATIENT
  Age: 62 Year
  Sex: Male

DRUGS (8)
  1. RIBAVIRIN [Concomitant]
     Indication: HEPATITIS C
     Route: 048
     Dates: start: 20120518, end: 20120607
  2. RIBAVIRIN [Concomitant]
     Route: 048
     Dates: start: 20120608
  3. TELAVIC (TELAPREVIR) [Suspect]
     Indication: HEPATITIS C
     Route: 048
     Dates: start: 20120518
  4. LANSOPRAZOLE [Concomitant]
     Route: 048
     Dates: start: 20120522
  5. ALLEGRA [Concomitant]
     Route: 048
     Dates: start: 20120523, end: 20120601
  6. ALLOPURINOL [Concomitant]
     Route: 048
     Dates: start: 20120521
  7. PREDNISOLONE [Concomitant]
     Route: 048
     Dates: start: 20120521
  8. PEG-INTRON [Concomitant]
     Indication: HEPATITIS C
     Route: 058
     Dates: start: 20120518

REACTIONS (1)
  - RASH [None]
